FAERS Safety Report 4567304-3 (Version None)
Quarter: 2005Q1

REPORT INFORMATION
  Report Type: 
  Country: None (occurrence: None)
  Receive Date: 20050201
  Receipt Date: 20050128
  Transmission Date: 20050727
  Serious: Yes (Other)
  Sender: FDA-Public Use
  Company Number: PHEH2005US01407

PATIENT
  Sex: Male

DRUGS (2)
  1. SANDOSTATIN [Suspect]
     Indication: CARCINOID SYNDROME
     Dosage: 250 UG, UNK
  2. SANDOSTATIN [Suspect]
     Dosage: 100 UG, ONCE/SINGLE
     Dates: start: 20050128, end: 20050128

REACTIONS (2)
  - ELECTROCARDIOGRAM CHANGE [None]
  - SINUS BRADYCARDIA [None]
